FAERS Safety Report 20020559 (Version 10)
Quarter: 2023Q4

REPORT INFORMATION
  Report Type: Report from Study
  Country: CA (occurrence: CA)
  Receive Date: 20211101
  Receipt Date: 20231010
  Transmission Date: 20240110
  Serious: Yes (Hospitalization, Other)
  Sender: FDA-Public Use
  Company Number: CA-NOVARTISPH-NVSC2009CA005264

PATIENT
  Age: 68 Year
  Sex: Female

DRUGS (14)
  1. SANDOSTATIN LAR DEPOT [Suspect]
     Active Substance: OCTREOTIDE ACETATE
     Indication: Neuroendocrine tumour
     Dosage: 30 MG, Q4W (EVERY 4 WEEKS)
     Route: 030
     Dates: start: 20090421
  2. SANDOSTATIN LAR DEPOT [Suspect]
     Active Substance: OCTREOTIDE ACETATE
     Dosage: 30 MG, Q4W (EVERY 4 WEEKS)
     Route: 030
  3. SANDOSTATIN LAR DEPOT [Suspect]
     Active Substance: OCTREOTIDE ACETATE
     Dosage: 30 MG, Q4W  (EVERY 4 WEEKS)
     Route: 030
     Dates: start: 20161026
  4. SANDOSTATIN LAR DEPOT [Suspect]
     Active Substance: OCTREOTIDE ACETATE
     Dosage: 30 MG, Q4W (EVERY 4 WEEKS)
     Route: 030
  5. SANDOSTATIN LAR DEPOT [Suspect]
     Active Substance: OCTREOTIDE ACETATE
     Dosage: 30 MG, Q4W
     Route: 030
  6. LEVOTHYROXINE [Concomitant]
     Active Substance: LEVOTHYROXINE
     Indication: Thyroid disorder
     Dosage: 0.1 MG, QD
     Route: 065
  7. LEVOTHYROXINE [Concomitant]
     Active Substance: LEVOTHYROXINE
     Dosage: 0.112 MG, QD
     Route: 065
  8. INSULIN NOS [Concomitant]
     Active Substance: INSULIN NOS
     Indication: Diabetes mellitus
     Dosage: UNK
     Route: 065
  9. LOMOTIL [Concomitant]
     Active Substance: ATROPINE SULFATE\DIPHENOXYLATE HYDROCHLORIDE
     Indication: Product used for unknown indication
     Dosage: UNK, TID
     Route: 065
  10. VITAMIN B12 [Concomitant]
     Active Substance: CYANOCOBALAMIN
     Indication: Product used for unknown indication
     Dosage: UNK
     Route: 065
  11. COTAZYM [Concomitant]
     Active Substance: PANCRELIPASE AMYLASE\PANCRELIPASE LIPASE\PANCRELIPASE PROTEASE
     Indication: Product used for unknown indication
     Dosage: UNK
     Route: 048
  12. HYDROCHLOROTHIAZIDE [Concomitant]
     Active Substance: HYDROCHLOROTHIAZIDE
     Indication: Product used for unknown indication
     Dosage: 25 MG
     Route: 065
  13. VITAMINS NOS [Concomitant]
     Active Substance: VITAMINS
     Indication: Product used for unknown indication
     Dosage: UNK
     Route: 065
  14. RAMIPRIL [Concomitant]
     Active Substance: RAMIPRIL
     Indication: Product used for unknown indication
     Dosage: UNK
     Route: 065

REACTIONS (45)
  - Urosepsis [Unknown]
  - Skin mass [Unknown]
  - Cervical polyp [Unknown]
  - Haemoglobin decreased [Unknown]
  - Rectal haemorrhage [Recovering/Resolving]
  - Blood glucose increased [Unknown]
  - Diarrhoea [Unknown]
  - Blood glucose decreased [Unknown]
  - Nausea [Unknown]
  - Malignant neoplasm progression [Recovering/Resolving]
  - Gastroenteropancreatic neuroendocrine tumour disease [Recovering/Resolving]
  - Haematochezia [Unknown]
  - Blood pressure decreased [Recovered/Resolved]
  - Body temperature decreased [Unknown]
  - Malaise [Unknown]
  - Full blood count decreased [Unknown]
  - Weight decreased [Unknown]
  - Blood glucose fluctuation [Unknown]
  - Chills [Unknown]
  - Pyrexia [Recovered/Resolved]
  - Blood pressure increased [Unknown]
  - Blood pressure systolic increased [Unknown]
  - Nasopharyngitis [Unknown]
  - Respiratory tract congestion [Not Recovered/Not Resolved]
  - Oropharyngeal pain [Unknown]
  - Vitamin D decreased [Unknown]
  - Head discomfort [Not Recovered/Not Resolved]
  - Cough [Recovered/Resolved]
  - Productive cough [Unknown]
  - Sputum discoloured [Unknown]
  - Chest discomfort [Unknown]
  - Balance disorder [Unknown]
  - Serum ferritin decreased [Unknown]
  - Depressed mood [Unknown]
  - Somnolence [Unknown]
  - Needle issue [Unknown]
  - Asthenia [Unknown]
  - Headache [Recovered/Resolved]
  - Vomiting [Unknown]
  - Dizziness [Unknown]
  - Headache [Unknown]
  - Injection site pain [Recovering/Resolving]
  - Injection site erythema [Recovering/Resolving]
  - Injection site mass [Unknown]
  - Injection site haemorrhage [Unknown]

NARRATIVE: CASE EVENT DATE: 20130501
